FAERS Safety Report 9561640 (Version 1)
Quarter: 2013Q3

REPORT INFORMATION
  Report Type: Spontaneous
  Country: US (occurrence: None)
  Receive Date: 20130821
  Receipt Date: 20130821
  Transmission Date: 20140515
  Serious: No
  Sender: FDA-Public Use
  Company Number: 1000045189

PATIENT
  Sex: Female

DRUGS (13)
  1. TUDORZA PRESSAIR [Suspect]
     Indication: CHRONIC OBSTRUCTIVE PULMONARY DISEASE
     Dosage: 800 MCG (400 MCG, 2 IN 1 D), RESPIRATORY
     Route: 055
     Dates: start: 20130514
  2. ADVAIR (FLUTICASONE, SALMETEROL) [Concomitant]
  3. BENICAR (OLMESARTAN MEDOXOMIL) [Concomitant]
  4. ZOCOR (SIMVASTATIN) [Concomitant]
  5. SINGULAIR [Concomitant]
  6. OMEGA-3 [Concomitant]
  7. CALCIUM [Concomitant]
  8. MVI (VITAMINS NOS) [Concomitant]
  9. CO Q10 (UBIDECARENONE) [Concomitant]
  10. VITAMIN B 6 (PYRIDOXXINE HYDROCHLORIDE) [Concomitant]
  11. VITAMIN B 12 (VITAMIN B NOS) [Concomitant]
  12. FOLIC ACID [Concomitant]
  13. MAGNESIUM [Concomitant]

REACTIONS (2)
  - Dyspnoea [None]
  - Product taste abnormal [None]
